FAERS Safety Report 5086479-3 (Version None)
Quarter: 2006Q3

REPORT INFORMATION
  Report Type: 
  Country: None (occurrence: None)
  Receive Date: 20060823
  Receipt Date: 20060815
  Transmission Date: 20061208
  Serious: Yes (Hospitalization)
  Sender: FDA-Public Use
  Company Number: FR-JNJFOC-20060803672

PATIENT
  Sex: Male
  Weight: 75 kg

DRUGS (3)
  1. HALDOL [Suspect]
     Indication: DRUG USE FOR UNKNOWN INDICATION
     Route: 065
  2. PARKINANE [Suspect]
     Indication: DRUG USE FOR UNKNOWN INDICATION
     Route: 065
  3. BLINDED THERAPY [Concomitant]
     Indication: SCHIZOPHRENIA
     Route: 048
     Dates: start: 19970505, end: 19970515

REACTIONS (2)
  - DRUG TOXICITY [None]
  - SUICIDE ATTEMPT [None]
